FAERS Safety Report 16334606 (Version 2)
Quarter: 2019Q2

REPORT INFORMATION
  Report Type: Report from Study
  Country: BD (occurrence: BD)
  Receive Date: 20190520
  Receipt Date: 20190607
  Transmission Date: 20190711
  Serious: Yes (Death)
  Sender: FDA-Public Use
  Company Number: PHHY2019BD115447

PATIENT
  Age: 63 Year
  Sex: Male
  Weight: 50 kg

DRUGS (2)
  1. VOTRIENT [Suspect]
     Active Substance: PAZOPANIB HYDROCHLORIDE
     Indication: TRANSITIONAL CELL CANCER OF THE RENAL PELVIS AND URETER
  2. VOTRIENT [Suspect]
     Active Substance: PAZOPANIB HYDROCHLORIDE
     Indication: TRANSITIONAL CELL CARCINOMA URETHRA
     Dosage: 200 MG, QID
     Route: 048

REACTIONS (4)
  - Malignant neoplasm progression [Fatal]
  - Product use in unapproved indication [Unknown]
  - Transitional cell cancer of the renal pelvis and ureter [Fatal]
  - Transitional cell carcinoma urethra [Fatal]
